FAERS Safety Report 15992536 (Version 1)
Quarter: 2019Q1

REPORT INFORMATION
  Report Type: Spontaneous
  Country: US (occurrence: US)
  Receive Date: 20190221
  Receipt Date: 20190221
  Transmission Date: 20190418
  Serious: Yes (Hospitalization)
  Sender: FDA-Public Use
  Company Number: US-VERTEX PHARMACEUTICALS-2019-001382

PATIENT
  Age: 22 Year
  Sex: Female

DRUGS (10)
  1. IRON [Concomitant]
     Active Substance: IRON
     Dosage: UNK
  2. ALBUTEROL SULFATE. [Concomitant]
     Active Substance: ALBUTEROL SULFATE
     Dosage: UNK
  3. CEFTAZIDIME. [Concomitant]
     Active Substance: CEFTAZIDIME
     Dosage: UNK
  4. VANCOMYCIN [Concomitant]
     Active Substance: VANCOMYCIN
     Dosage: UNK
  5. TOBRAMYCIN. [Concomitant]
     Active Substance: TOBRAMYCIN
     Dosage: 300 MG/5ML AMPULE VIA NEBULISER
     Route: 055
  6. VITAMIN A                          /00056001/ [Concomitant]
     Active Substance: RETINOL
     Dosage: UNK
  7. VITAMIN D3 [Concomitant]
     Active Substance: CHOLECALCIFEROL
     Dosage: UNK
  8. BETHKIS [Concomitant]
     Active Substance: TOBRAMYCIN
     Dosage: INHALE 300 MG, BID
     Route: 055
  9. SYMDEKO [Suspect]
     Active Substance: IVACAFTOR\TEZACAFTOR
     Indication: CYSTIC FIBROSIS
     Dosage: UNK, BID
     Route: 048
  10. CREON [Concomitant]
     Active Substance: PANCRELIPASE AMYLASE\PANCRELIPASE LIPASE\PANCRELIPASE PROTEASE
     Dosage: UNK

REACTIONS (1)
  - Inflammation [Unknown]

NARRATIVE: CASE EVENT DATE: 201901
